FAERS Safety Report 17989788 (Version 2)
Quarter: 2020Q4

REPORT INFORMATION
  Report Type: Spontaneous
  Country: CA (occurrence: CA)
  Receive Date: 20200707
  Receipt Date: 20201119
  Transmission Date: 20210113
  Serious: Yes (Other)
  Sender: FDA-Public Use
  Company Number: CA-VIIV HEALTHCARE LIMITED-CA2020AMR115401

PATIENT

DRUGS (3)
  1. NELFINAVIR MESILATE [Suspect]
     Active Substance: NELFINAVIR MESYLATE
     Indication: HIV INFECTION
     Dosage: UNK
     Route: 064
  2. LAMIVUDINE. [Suspect]
     Active Substance: LAMIVUDINE
     Indication: HIV INFECTION
     Dosage: UNK
     Route: 064
  3. ZIDOVUDINE. [Suspect]
     Active Substance: ZIDOVUDINE
     Indication: HIV INFECTION
     Dosage: UNK
     Route: 064

REACTIONS (2)
  - Neural tube defect [Unknown]
  - Maternal exposure during pregnancy [Unknown]
